FAERS Safety Report 19148319 (Version 2)
Quarter: 2021Q2

REPORT INFORMATION
  Report Type: Report from Study
  Country: JP (occurrence: JP)
  Receive Date: 20210416
  Receipt Date: 20210422
  Transmission Date: 20210717
  Serious: Yes (Death, Hospitalization)
  Sender: FDA-Public Use
  Company Number: JP-EISAI MEDICAL RESEARCH-EC-2021-091257

PATIENT
  Age: 70 Year
  Sex: Female
  Weight: 52 kg

DRUGS (8)
  1. LOXOPROFEN SODIUM HYDRATE [Concomitant]
     Active Substance: LOXOPROFEN SODIUM DIHYDRATE
     Indication: TUMOUR ASSOCIATED FEVER
     Route: 048
     Dates: start: 20210330, end: 20210413
  2. TSUMURA SHOSEIRYUTO EXTRACT [Concomitant]
     Indication: RHINITIS ALLERGIC
     Dosage: GRANULATED POWDER
     Route: 048
     Dates: start: 2018, end: 20210412
  3. TAKECAB [Concomitant]
     Active Substance: VONOPRAZAN FUMARATE
     Indication: GASTRITIS PROPHYLAXIS
     Route: 048
     Dates: start: 2016, end: 20210413
  4. ROSUVASTATIN OD [Concomitant]
     Indication: HYPERLIPIDAEMIA
     Route: 048
     Dates: start: 2005, end: 20210413
  5. ILUAMIX [Concomitant]
     Indication: HYPERTENSION
     Route: 048
     Dates: start: 2000, end: 20210412
  6. ERIBULIN [Suspect]
     Active Substance: ERIBULIN
     Indication: LUNG NEOPLASM MALIGNANT
     Route: 041
     Dates: start: 20210401, end: 20210401
  7. NIVOLUMAB [Suspect]
     Active Substance: NIVOLUMAB
     Indication: LUNG NEOPLASM MALIGNANT
     Route: 041
     Dates: start: 20210401, end: 20210401
  8. LUNESTA [Concomitant]
     Active Substance: ESZOPICLONE
     Indication: INSOMNIA
     Route: 048
     Dates: start: 20210401, end: 20210412

REACTIONS (1)
  - Septic shock [Fatal]

NARRATIVE: CASE EVENT DATE: 20210411
